FAERS Safety Report 7183918-9 (Version None)
Quarter: 2010Q4

REPORT INFORMATION
  Report Type: 
  Country: None (occurrence: None)
  Receive Date: 20101222
  Receipt Date: 20101213
  Transmission Date: 20110411
  Serious: Yes (Hospitalization)
  Sender: FDA-Public Use
  Company Number: US-ROCHE-747306

PATIENT
  Sex: Female
  Weight: 73.1 kg

DRUGS (6)
  1. BEVACIZUMAB [Suspect]
     Dosage: UNK
     Route: 065
  2. PLACEBO [Suspect]
     Dosage: 150 MG, QD
     Route: 048
     Dates: start: 20080822, end: 20100715
  3. PLACEBO [Suspect]
     Dosage: 150 MG, QD
     Route: 048
     Dates: start: 20080822, end: 20100715
  4. FLUOROURACIL [Suspect]
     Route: 065
  5. LEUCOVORIN CALCIUM [Suspect]
     Dosage: UNK
     Route: 065
  6. OXALIPLATIN [Suspect]
     Dosage: UNK
     Route: 065

REACTIONS (1)
  - CHOLECYSTITIS ACUTE [None]
